FAERS Safety Report 13926830 (Version 1)
Quarter: 2017Q3

REPORT INFORMATION
  Report Type: Spontaneous
  Country: US (occurrence: US)
  Receive Date: 20170901
  Receipt Date: 20170901
  Transmission Date: 20171127
  Serious: Yes (Hospitalization, Other)
  Sender: FDA-Public Use
  Company Number: US-ASTELLAS-2017US011583

PATIENT
  Age: 90 Year
  Sex: Male

DRUGS (2)
  1. XTANDI [Suspect]
     Active Substance: ENZALUTAMIDE
     Route: 048
  2. XTANDI [Suspect]
     Active Substance: ENZALUTAMIDE
     Indication: PROSTATE CANCER
     Route: 048
     Dates: start: 20161024

REACTIONS (9)
  - Nightmare [Unknown]
  - Decreased appetite [Unknown]
  - Fall [Unknown]
  - Disturbance in attention [Unknown]
  - Asthenia [Unknown]
  - Slow speech [Unknown]
  - Blood pressure abnormal [Unknown]
  - Fatigue [Unknown]
  - Hypertension [Unknown]

NARRATIVE: CASE EVENT DATE: 20170301
